FAERS Safety Report 25286079 (Version 1)
Quarter: 2025Q2

REPORT INFORMATION
  Report Type: Spontaneous
  Country: GB (occurrence: GB)
  Receive Date: 20250509
  Receipt Date: 20250509
  Transmission Date: 20250717
  Serious: Yes (Death, Life-Threatening, Other)
  Sender: ACCORD
  Company Number: None

PATIENT
  Age: 77 Year
  Sex: Male

DRUGS (15)
  1. METHOTREXATE [Suspect]
     Active Substance: METHOTREXATE
     Indication: Product used for unknown indication
  2. ALLOPURINOL [Concomitant]
     Active Substance: ALLOPURINOL
  3. FOLIC ACID [Concomitant]
     Active Substance: FOLIC ACID
  4. BISOPROLOL [Concomitant]
     Active Substance: BISOPROLOL
  5. DIGOXIN [Concomitant]
     Active Substance: DIGOXIN
  6. ATORVASTATIN [Concomitant]
     Active Substance: ATORVASTATIN
  7. SODIUM BICARBONATE [Concomitant]
     Active Substance: SODIUM BICARBONATE
  8. QUININE [Concomitant]
     Active Substance: QUININE
  9. WARFARIN [Concomitant]
     Active Substance: WARFARIN
  10. PREDNISOLONE [Concomitant]
     Active Substance: PREDNISOLONE
  11. ACETAMINOPHEN [Concomitant]
     Active Substance: ACETAMINOPHEN
  12. OMEPRAZOLE [Concomitant]
     Active Substance: OMEPRAZOLE
  13. AMLODIPINE [Concomitant]
     Active Substance: AMLODIPINE BESYLATE
  14. CALCIUM ACETATE [Concomitant]
     Active Substance: CALCIUM ACETATE
  15. ALFACALCIDOL [Concomitant]
     Active Substance: ALFACALCIDOL

REACTIONS (2)
  - Mucosal inflammation [Unknown]
  - Pancytopenia [Fatal]
